FAERS Safety Report 18970576 (Version 1)
Quarter: 2021Q1

REPORT INFORMATION
  Report Type: Spontaneous
  Country: PL (occurrence: PL)
  Receive Date: 20210304
  Receipt Date: 20210304
  Transmission Date: 20210420
  Serious: Yes (Other)
  Sender: FDA-Public Use
  Company Number: PL-BAUSCH-BL-2021-002205

PATIENT
  Age: 68 Year
  Sex: Male

DRUGS (10)
  1. FUROSEMIDE. [Interacting]
     Active Substance: FUROSEMIDE
     Indication: PRODUCT USED FOR UNKNOWN INDICATION
     Route: 048
  2. CETIRIZINE [Interacting]
     Active Substance: CETIRIZINE HYDROCHLORIDE
     Indication: PRURITUS GENITAL
     Route: 065
  3. ATORVASTATIN [Interacting]
     Active Substance: ATORVASTATIN
     Indication: PRODUCT USED FOR UNKNOWN INDICATION
     Route: 048
  4. RIVAROXABAN [Interacting]
     Active Substance: RIVAROXABAN
     Indication: PRODUCT USED FOR UNKNOWN INDICATION
     Route: 048
  5. METOPROLOL. [Concomitant]
     Active Substance: METOPROLOL
     Indication: PRODUCT USED FOR UNKNOWN INDICATION
     Route: 048
  6. CIPROFLOXACIN. [Interacting]
     Active Substance: CIPROFLOXACIN
     Indication: PENILE INFECTION
     Dosage: TWICE
     Route: 048
  7. QUETIAPINE. [Interacting]
     Active Substance: QUETIAPINE
     Dosage: BEFORE GOING TO BED
     Route: 065
  8. DIAZEPAM. [Suspect]
     Active Substance: DIAZEPAM
     Indication: INSOMNIA
     Dosage: 1/2 HOUR BEFORE GOING TO SLEEP
     Route: 065
  9. FLUCONAZOLE. [Interacting]
     Active Substance: FLUCONAZOLE
     Indication: PENILE INFECTION
     Dosage: TWICE
     Route: 048
  10. QUETIAPINE. [Interacting]
     Active Substance: QUETIAPINE
     Indication: INSOMNIA
     Dosage: BEFORE GOING TO BED
     Route: 065

REACTIONS (6)
  - Therapy non-responder [Unknown]
  - Drug interaction [Unknown]
  - Pruritus genital [Recovered/Resolved]
  - Fall [Unknown]
  - Penile haemorrhage [Recovered/Resolved]
  - Disease progression [Recovered/Resolved]
